FAERS Safety Report 10976405 (Version 2)
Quarter: 2015Q2

REPORT INFORMATION
  Report Type: Spontaneous
  Country: US (occurrence: US)
  Receive Date: 20150401
  Receipt Date: 20150525
  Transmission Date: 20150821
  Serious: Yes (Other)
  Sender: FDA-Public Use
  Company Number: US-JNJFOC-20130415761

PATIENT
  Sex: Male
  Weight: 30.84 kg

DRUGS (1)
  1. RISPERDAL [Suspect]
     Active Substance: RISPERIDONE
     Indication: ATTENTION DEFICIT/HYPERACTIVITY DISORDER
     Route: 048
     Dates: start: 2003, end: 200803

REACTIONS (4)
  - Gynaecomastia [Not Recovered/Not Resolved]
  - Tardive dyskinesia [Unknown]
  - Drug ineffective [Unknown]
  - Obesity [Not Recovered/Not Resolved]
